FAERS Safety Report 24738612 (Version 1)
Quarter: 2024Q4

REPORT INFORMATION
  Report Type: Spontaneous
  Country: US (occurrence: US)
  Receive Date: 20241216
  Receipt Date: 20241216
  Transmission Date: 20250114
  Serious: No
  Sender: VISTAPHARM
  Company Number: US-VISTAPHARM-2024-US-057891

PATIENT
  Age: 61 Year
  Sex: Female

DRUGS (2)
  1. SUCRALFATE ORAL SUSPENSION [Suspect]
     Active Substance: SUCRALFATE
     Indication: Gastrointestinal disorder
     Dosage: 2 TEASPOONS 4 TIMES PER DAY ON AN EMPTY STOMACH
     Route: 048
     Dates: start: 20240825
  2. FAMOTIDINE [Concomitant]
     Active Substance: FAMOTIDINE

REACTIONS (3)
  - Abdominal pain upper [Not Recovered/Not Resolved]
  - Pollakiuria [Not Recovered/Not Resolved]
  - Weight decreased [Not Recovered/Not Resolved]

NARRATIVE: CASE EVENT DATE: 20240101
